FAERS Safety Report 9978389 (Version 5)
Quarter: 2014Q2

REPORT INFORMATION
  Report Type: Report from Study
  Country: GB (occurrence: GB)
  Receive Date: 20140306
  Receipt Date: 20140509
  Transmission Date: 20141212
  Serious: Yes (Other)
  Sender: FDA-Public Use
  Company Number: GB-009507513-1403GBR000984

PATIENT
  Age: 75 Year
  Sex: Male

DRUGS (2)
  1. VORINOSTAT [Suspect]
     Indication: PLASMA CELL MYELOMA
     Dosage: 300 MG, DAYS 1-7 AND 15-21
     Route: 048
     Dates: start: 20140117, end: 20140227
  2. LENALIDOMIDE [Suspect]
     Indication: PLASMA CELL MYELOMA
     Dosage: 10 MG, DAY 1-21
     Route: 048
     Dates: start: 20140117, end: 20140227

REACTIONS (1)
  - Peripheral sensory neuropathy [Not Recovered/Not Resolved]
